FAERS Safety Report 6754062-7 (Version None)
Quarter: 2010Q2

REPORT INFORMATION
  Report Type: 
  Country: None (occurrence: None)
  Receive Date: 20100603
  Receipt Date: 20100528
  Transmission Date: 20101027
  Serious: Yes (Death, Hospitalization, Other)
  Sender: FDA-Public Use
  Company Number: JP-BAYER-200915278BYL

PATIENT
  Age: 54 Year
  Sex: Male
  Weight: 90 kg

DRUGS (16)
  1. NEXAVAR [Suspect]
     Indication: HEPATIC NEOPLASM MALIGNANT
     Dosage: TOTAL DAILY DOSE: 800 MG  UNIT DOSE: 200 MG
     Route: 048
     Dates: start: 20090716, end: 20090806
  2. NEXAVAR [Suspect]
     Dosage: UNIT DOSE: 200 MG
     Route: 048
     Dates: start: 20090820, end: 20091118
  3. NEXAVAR [Suspect]
     Dosage: TOTAL DAILY DOSE: 400 MG  UNIT DOSE: 200 MG
     Route: 048
     Dates: start: 20091119, end: 20091229
  4. OMEPRAL [Concomitant]
     Indication: GASTRIC ULCER
     Dosage: BEFORE NEXAVAR ADMINISTRATION
     Route: 048
  5. PERDIPINE LA [Concomitant]
     Dosage: BEFORE NEXAVAR ADMINISTRATION
     Route: 048
  6. DIOVAN [Concomitant]
     Dosage: BEFORE NEXAVAR ADMINISTRATION
     Route: 048
  7. LASIX [Concomitant]
     Dosage: BEFORE NEXAVAR ADMINISTRATION
     Route: 048
  8. ALDACTONE [Concomitant]
     Dosage: BEFORE NEXAVAR ADMINISTRATION
     Route: 048
  9. GASMOTIN [Concomitant]
     Indication: GASTRITIS
     Dosage: BEFORE NEXAVAR ADMINISTRATION
     Route: 048
  10. AMINOLEBAN EN [Concomitant]
     Dosage: BEFORE NEXAVAR ADMINISTRATION
     Route: 048
  11. URSO 250 [Concomitant]
     Dosage: BEFORE NEXAVAR ADMINISTRATION
     Route: 048
  12. ALOSITOL [Concomitant]
     Dosage: BEFORE NEXAVAR ADMINISTRATION
     Route: 048
  13. EURODIN [Concomitant]
     Indication: INSOMNIA
     Dosage: BEFORE NEXAVAR ADMINISTRATION
     Route: 048
  14. ROHYPNOL [Concomitant]
     Indication: MUSCLE SPASMS
     Dosage: BEFORE NEXAVAR ADMINISTRATION
     Route: 048
  15. SHAKUYAKU-KANZO-TO [Concomitant]
     Indication: MUSCLE SPASMS
     Dosage: BEFORE NEXAVAR ADMINISTRATION
     Route: 048
  16. NOVORAPID [Concomitant]
     Dosage: BEFORE NEXAVAR ADMINISTRATION
     Route: 058

REACTIONS (10)
  - ALOPECIA [None]
  - ANAEMIA [None]
  - DIARRHOEA [None]
  - HEPATIC ENCEPHALOPATHY [None]
  - HEPATIC FAILURE [None]
  - HEPATIC NEOPLASM MALIGNANT [None]
  - PALMAR-PLANTAR ERYTHRODYSAESTHESIA SYNDROME [None]
  - RENAL FAILURE [None]
  - SCROTAL ULCER [None]
  - SKIN HYPERTROPHY [None]
